FAERS Safety Report 5653452-3 (Version None)
Quarter: 2008Q1

REPORT INFORMATION
  Report Type: 
  Country: None (occurrence: None)
  Receive Date: 20080306
  Receipt Date: 20080227
  Transmission Date: 20080703
  Serious: Yes (Hospitalization)
  Sender: FDA-Public Use
  Company Number: B0511057A

PATIENT
  Age: 84 Year
  Sex: Female

DRUGS (2)
  1. DEROXAT [Suspect]
     Indication: DRUG USE FOR UNKNOWN INDICATION
     Dosage: 20MG PER DAY
     Route: 048
     Dates: start: 20070518, end: 20070614
  2. TEMESTA [Suspect]
     Dosage: 1MG PER DAY
     Route: 048
     Dates: start: 20070518, end: 20070607

REACTIONS (7)
  - ASTHENIA [None]
  - BRADYCARDIA [None]
  - DIZZINESS [None]
  - HYPERTENSION [None]
  - RENAL FAILURE [None]
  - SOMNOLENCE [None]
  - TREATMENT NONCOMPLIANCE [None]
